FAERS Safety Report 5613796-8 (Version None)
Quarter: 2008Q1

REPORT INFORMATION
  Report Type: 
  Country: None (occurrence: None)
  Receive Date: 20080205
  Receipt Date: 20080125
  Transmission Date: 20080703
  Serious: Yes (Hospitalization)
  Sender: FDA-Public Use
  Company Number: JP-TYCO HEALTHCARE/MALLINCKRODT-T200800096

PATIENT

DRUGS (5)
  1. HEXABRIX [Suspect]
     Indication: ANGIOGRAM
     Dosage: 140 ML, SINGLE
     Route: 013
     Dates: start: 20071231, end: 20071231
  2. HEPARIN [Concomitant]
  3. NITROPEN [Concomitant]
  4. ASPIRIN [Concomitant]
  5. XYLOCAINE                          /00033401/ [Concomitant]

REACTIONS (7)
  - ALANINE AMINOTRANSFERASE INCREASED [None]
  - ASPARTATE AMINOTRANSFERASE INCREASED [None]
  - BLOOD CREATINE PHOSPHOKINASE INCREASED [None]
  - BLOOD LACTATE DEHYDROGENASE INCREASED [None]
  - BLOOD PRESSURE DECREASED [None]
  - C-REACTIVE PROTEIN INCREASED [None]
  - WHITE BLOOD CELL COUNT INCREASED [None]
